FAERS Safety Report 15377316 (Version 4)
Quarter: 2019Q1

REPORT INFORMATION
  Report Type: Spontaneous
  Country: US (occurrence: US)
  Receive Date: 20180913
  Receipt Date: 20190329
  Transmission Date: 20190417
  Serious: Yes (Disabling, Other)
  Sender: FDA-Public Use
  Company Number: US-PFIZER INC-2018363697

PATIENT
  Age: 73 Year
  Sex: Female
  Weight: 88 kg

DRUGS (1)
  1. XELJANZ [Suspect]
     Active Substance: TOFACITINIB CITRATE
     Indication: RHEUMATOID ARTHRITIS
     Dosage: 5 MG, 2X/DAY
     Route: 048
     Dates: start: 201806, end: 20180821

REACTIONS (15)
  - Pollakiuria [Unknown]
  - Nephropathy [Unknown]
  - Headache [Recovering/Resolving]
  - Cough [Recovering/Resolving]
  - Hypersomnia [Recovering/Resolving]
  - Herpes simplex [Recovering/Resolving]
  - Rhinorrhoea [Not Recovered/Not Resolved]
  - Urinary tract infection [Recovered/Resolved]
  - Sinusitis [Unknown]
  - Upper respiratory tract infection [Unknown]
  - Nasal discharge discolouration [Unknown]
  - Malaise [Unknown]
  - Chills [Recovered/Resolved]
  - Secretion discharge [Unknown]
  - Drug hypersensitivity [Unknown]

NARRATIVE: CASE EVENT DATE: 201807
